FAERS Safety Report 10206377 (Version 1)
Quarter: 2014Q2

REPORT INFORMATION
  Report Type: Spontaneous
  Country: US (occurrence: US)
  Receive Date: 20140530
  Receipt Date: 20140530
  Transmission Date: 20141212
  Serious: No
  Sender: FDA-Public Use
  Company Number: US-JNJFOC-20140511289

PATIENT
  Sex: Male

DRUGS (10)
  1. DURAGESIC [Suspect]
     Indication: PAIN
     Route: 062
     Dates: start: 1999
  2. PAXIL [Concomitant]
     Indication: SOCIAL PHOBIA
     Route: 048
     Dates: start: 1994
  3. PAXIL [Concomitant]
     Indication: BIPOLAR DISORDER
     Route: 048
     Dates: start: 1994
  4. LAMICTAL [Concomitant]
     Indication: BIPOLAR DISORDER
     Route: 048
     Dates: start: 2001
  5. BUSPAR [Concomitant]
     Indication: SOCIAL PHOBIA
     Route: 048
     Dates: start: 2001
  6. LIDODERM [Concomitant]
     Indication: PAIN
     Route: 062
     Dates: start: 1989
  7. VIVANCE [Concomitant]
     Route: 048
     Dates: start: 2013
  8. TERBINAFINE [Concomitant]
     Indication: FUNGAL INFECTION
     Route: 048
     Dates: start: 2014
  9. SIMVASTATIN [Concomitant]
     Indication: BLOOD CHOLESTEROL INCREASED
     Route: 048
     Dates: start: 1989
  10. LYRICA [Concomitant]
     Indication: PAIN
     Route: 065
     Dates: start: 2012

REACTIONS (8)
  - Wrong technique in drug usage process [Unknown]
  - Product adhesion issue [Unknown]
  - Withdrawal syndrome [Not Recovered/Not Resolved]
  - Drug ineffective [Not Recovered/Not Resolved]
  - Hyperhidrosis [Unknown]
  - Product quality issue [Unknown]
  - Poor quality drug administered [Not Recovered/Not Resolved]
  - Inappropriate schedule of drug administration [Unknown]
